FAERS Safety Report 6198068-8 (Version None)
Quarter: 2009Q2

REPORT INFORMATION
  Report Type: 
  Country: None (occurrence: None)
  Receive Date: 20090521
  Receipt Date: 20090508
  Transmission Date: 20091009
  Serious: Yes (Hospitalization)
  Sender: FDA-Public Use
  Company Number: GB-ELI_LILLY_AND_COMPANY-GB200905001479

PATIENT
  Age: 63 Year
  Sex: Female
  Weight: 74 kg

DRUGS (7)
  1. BYETTA [Suspect]
     Indication: TYPE 2 DIABETES MELLITUS
     Dosage: 10 UG, UNKNOWN
     Route: 058
     Dates: start: 20080401
  2. AMLODIPINE [Concomitant]
     Dosage: 10 MG, UNK
     Route: 048
  3. ASPIRIN [Concomitant]
  4. ATENOLOL [Concomitant]
     Dosage: 50 MG, UNK
     Route: 048
  5. ATORVASTATIN CALCIUM [Concomitant]
     Dosage: 10 MG, UNK
     Route: 048
  6. BENDROFLUMETHIAZIDE [Concomitant]
     Dosage: 2.5 MG, UNK
     Route: 048
  7. LANSOPRAZOLE [Concomitant]

REACTIONS (1)
  - ATRIOVENTRICULAR BLOCK [None]
